FAERS Safety Report 8072288-X (Version None)
Quarter: 2012Q1

REPORT INFORMATION
  Report Type: 
  Country: None (occurrence: None)
  Receive Date: 20120126
  Receipt Date: 20120118
  Transmission Date: 20120608
  Serious: Yes (Hospitalization, Other)
  Sender: FDA-Public Use
  Company Number: US-ASTELLAS-2011US007365

PATIENT
  Sex: Male
  Weight: 76 kg

DRUGS (8)
  1. MYCOPHENOLATE MOFETIL (CELLCEPT) [Concomitant]
     Indication: HEART TRANSPLANT
     Dosage: 1000 MG, BID
     Route: 048
     Dates: start: 20080102
  2. PREDNISONE [Concomitant]
     Indication: PRODUCT USED FOR UNKNOWN INDICATION
     Dosage: 10 MG, UID/QD
     Route: 048
  3. DEMADEX [Concomitant]
     Indication: BLOOD PRESSURE
     Dosage: 100 MG, UID/QD
     Route: 048
  4. BACTRIM [Concomitant]
     Indication: ANTIBIOTIC THERAPY
     Dosage: 960 MG, UID/QD
     Route: 048
  5. COREG [Concomitant]
     Indication: PRODUCT USED FOR UNKNOWN INDICATION
     Dosage: 6.25 MG, BID
     Route: 048
  6. ALDACTONE [Concomitant]
     Indication: PRODUCT USED FOR UNKNOWN INDICATION
     Dosage: 25 MG, UID/QD
     Route: 048
  7. ZESTRIL [Concomitant]
     Indication: BLOOD PRESSURE
     Dosage: 5 MG, UID/QD
     Route: 048
  8. PROGRAF [Suspect]
     Indication: HEART TRANSPLANT
     Dosage: 7 MG, BID
     Route: 048
     Dates: start: 20080102

REACTIONS (4)
  - HEART TRANSPLANT [None]
  - CARDIAC FAILURE CONGESTIVE [None]
  - HEART TRANSPLANT REJECTION [None]
  - TREATMENT NONCOMPLIANCE [None]
